FAERS Safety Report 22593156 (Version 3)
Quarter: 2023Q4

REPORT INFORMATION
  Report Type: Spontaneous
  Country: DK (occurrence: DK)
  Receive Date: 20230613
  Receipt Date: 20231030
  Transmission Date: 20240109
  Serious: Yes (Hospitalization)
  Sender: FDA-Public Use
  Company Number: DK-NOVOPROD-1073685

PATIENT
  Age: 60 Year
  Sex: Female
  Weight: 127 kg

DRUGS (16)
  1. WEGOVY [Suspect]
     Active Substance: SEMAGLUTIDE
     Dosage: UNK
     Route: 058
  2. WEGOVY [Suspect]
     Active Substance: SEMAGLUTIDE
     Indication: Obesity
     Dosage: 0.25 MG, QW
     Route: 058
  3. ZOLPIDEM [Concomitant]
     Active Substance: ZOLPIDEM TARTRATE
     Indication: Sleep disorder
     Dosage: 10 MG, QD
     Dates: start: 201508
  4. PREGABALIN [Concomitant]
     Active Substance: PREGABALIN
     Indication: Depression
     Dosage: 75 MG, QD
     Dates: start: 20211207
  5. ELIQUIS [Concomitant]
     Active Substance: APIXABAN
     Indication: Thrombosis
     Dosage: 5 MG, BID
     Dates: start: 20210823
  6. METOPROLOL SUCCINATE [Concomitant]
     Active Substance: METOPROLOL SUCCINATE
     Indication: Blood pressure abnormal
     Dosage: 25.00 BID DOSAGE UNIT IS NOT REPORTED.
     Dates: start: 20200416
  7. AMLODIPINE [Concomitant]
     Active Substance: AMLODIPINE BESYLATE
     Indication: Angina pectoris
     Dosage: 5 MG, QD
     Dates: start: 20200205
  8. AVASTIN [Concomitant]
     Active Substance: BEVACIZUMAB
     Indication: Blood cholesterol
     Dosage: 40 MG, QD
     Dates: start: 20171227
  9. PANTOPRAZOLE [Concomitant]
     Active Substance: PANTOPRAZOLE
     Indication: Gastrointestinal disorder
     Dosage: 40 MG, BID
     Dates: start: 20200213
  10. FERROUS SULFATE [Concomitant]
     Active Substance: FERROUS SULFATE
     Indication: Mineral supplementation
     Dosage: UNK (DOSE DETAILS NOT REPORTED)
     Dates: start: 20170531
  11. SPIRIVA [Concomitant]
     Active Substance: TIOTROPIUM BROMIDE MONOHYDRATE
     Indication: Asthma
     Dosage: 18 ?G, QD (DOSAGE IS TAKEN IN THE MORNING)
     Dates: start: 20210428
  12. INNOVAIR [Concomitant]
     Active Substance: BECLOMETHASONE DIPROPIONATE\FORMOTEROL
     Indication: Asthma
     Dosage: 206 ?G, QD (DOSAGE: 200+6 ?G. FREQUENCY: 2 BREATHS IN THE MORNING AND 2 BREATHS IN THE EVENING)
     Dates: start: 20201217
  13. ALBUTEROL SULFATE [Concomitant]
     Active Substance: ALBUTEROL SULFATE
     Indication: Asthma
     Dosage: 200 ?G, PRN
     Dates: start: 20210620
  14. ACETAMINOPHEN [Concomitant]
     Active Substance: ACETAMINOPHEN
     Indication: Pain
     Dosage: 1000 MG, QD (DOSAGE: 1 REGULARLY, MAXIMUM 4 DAILY)
     Dates: start: 2010
  15. LEVOTHYROXINE [Concomitant]
     Active Substance: LEVOTHYROXINE
     Indication: Metabolic disorder
     Dosage: 150 ?G, QD
     Dates: start: 20210307
  16. OXAZEPAM [Concomitant]
     Active Substance: OXAZEPAM
     Indication: Sedative therapy
     Dosage: ABOUT 0.5 A DAY AS NEEDED
     Dates: start: 2019

REACTIONS (6)
  - Blood glucose decreased [Recovered/Resolved]
  - Diplopia [Not Recovered/Not Resolved]
  - Malaise [Unknown]
  - Vomiting [Unknown]
  - Fatigue [Unknown]
  - Dizziness [Unknown]

NARRATIVE: CASE EVENT DATE: 20230629
